FAERS Safety Report 16501242 (Version 1)
Quarter: 2019Q3

REPORT INFORMATION
  Report Type: Spontaneous
  Country: CH (occurrence: CH)
  Receive Date: 20190701
  Receipt Date: 20190701
  Transmission Date: 20191004
  Serious: Yes (Other)
  Sender: FDA-Public Use
  Company Number: CH-PFIZER INC-2019270916

PATIENT
  Age: 56 Year
  Sex: Male

DRUGS (32)
  1. AVALOX [Suspect]
     Active Substance: MOXIFLOXACIN HYDROCHLORIDE
     Indication: TUBERCULOSIS
     Dosage: 400 MG, 1X/DAY
     Route: 048
     Dates: start: 20190426
  2. PREDNISONE. [Suspect]
     Active Substance: PREDNISONE
     Dosage: UNK (DECLINING SCALE)
     Route: 048
  3. HALDOL [Suspect]
     Active Substance: HALOPERIDOL
     Dosage: 1 MG, 3X/DAY
     Route: 048
     Dates: start: 20190510
  4. HALDOL [Suspect]
     Active Substance: HALOPERIDOL
     Dosage: 0.5 MG, AS NEEDED (MAX 1X/D ; AS NECESSARY)
     Route: 048
     Dates: start: 20190510
  5. TRITTICO [Concomitant]
     Active Substance: TRAZODONE HYDROCHLORIDE
     Dosage: UNK
  6. CREON [Concomitant]
     Active Substance: PANCRELIPASE AMYLASE\PANCRELIPASE LIPASE\PANCRELIPASE PROTEASE
     Dosage: UNK
  7. DAFALGAN [Concomitant]
     Active Substance: ACETAMINOPHEN
     Dosage: UNK (RESERVED)
  8. TEMESTA EXPIDET [Suspect]
     Active Substance: LORAZEPAM
     Dosage: 2.5 MG, 1X/DAY
     Route: 048
     Dates: start: 20190515
  9. MYAMBUTOL [Suspect]
     Active Substance: ETHAMBUTOL HYDROCHLORIDE
     Indication: TUBERCULOSIS
     Dosage: 900 MG, UNK (3X/WEEK)
     Route: 048
     Dates: start: 20190426
  10. INSULATARD HM [Concomitant]
     Active Substance: INSULIN HUMAN
     Dosage: UNK
  11. SOLIAN [Concomitant]
     Active Substance: AMISULPRIDE
     Dosage: UNK
  12. ACIDUM FOLICUM [Concomitant]
     Active Substance: FOLIC ACID
     Dosage: UNK
  13. PREDNISONE. [Suspect]
     Active Substance: PREDNISONE
     Dosage: 30 MG, 1X/DAY
     Dates: start: 20190426
  14. ZOLPIDEM [Concomitant]
     Active Substance: ZOLPIDEM TARTRATE
     Dosage: UNK
  15. TEMESTA EXPIDET [Suspect]
     Active Substance: LORAZEPAM
     Dosage: 1 MG, 2X/DAY
     Route: 048
     Dates: start: 20190515
  16. NEXIUM [Suspect]
     Active Substance: ESOMEPRAZOLE MAGNESIUM
     Dosage: 40 MG, 2X/DAY (OVER 3 MIN)
     Route: 042
     Dates: start: 20190509
  17. RIFAMPICIN [Suspect]
     Active Substance: RIFAMPIN
     Indication: TUBERCULOSIS
     Dosage: 600 MG, 1X/DAY
     Route: 048
     Dates: start: 20190426
  18. ISONIAZIDE [Suspect]
     Active Substance: ISONIAZID
     Indication: TUBERCULOSIS
     Dosage: 250 MG, 1X/DAY
     Route: 048
     Dates: start: 20190429
  19. CALCIMAGON D3 [Concomitant]
     Active Substance: CALCIUM\CHOLECALCIFEROL
     Dosage: UNK
  20. BIOFLORINA [Concomitant]
     Dosage: UNK
  21. NOVORAPID [Concomitant]
     Active Substance: INSULIN ASPART
     Dosage: UNK (RESERVED)
  22. TEMGESIC [Suspect]
     Active Substance: BUPRENORPHINE HYDROCHLORIDE
     Dosage: 0.1 MG, AS NEEDED (3X/D MAX ; AS NECESSARY)
     Route: 060
     Dates: start: 20190519
  23. VITAMIN B6 [Concomitant]
     Active Substance: PYRIDOXINE HYDROCHLORIDE
     Dosage: UNK
  24. TEMGESIC [Suspect]
     Active Substance: BUPRENORPHINE HYDROCHLORIDE
     Dosage: 0.1 MG, 3X/DAY
     Route: 060
     Dates: start: 20190519
  25. ARANESP [Concomitant]
     Active Substance: DARBEPOETIN ALFA
     Dosage: UNK
  26. NEPHROTRANS [Concomitant]
     Active Substance: SODIUM BICARBONATE
     Dosage: UNK
  27. TORASEMIDE [Suspect]
     Active Substance: TORSEMIDE
     Dosage: 40 MG, 1X/DAY
     Route: 048
     Dates: start: 20190426
  28. CALCIUM CARBONATE. [Concomitant]
     Active Substance: CALCIUM CARBONATE
     Dosage: UNK
  29. PREDNISONE. [Suspect]
     Active Substance: PREDNISONE
     Dosage: UNK
     Dates: start: 20190611, end: 20190614
  30. COVERSUM N [Suspect]
     Active Substance: PERINDOPRIL
     Dosage: 10 MG, 1X/DAY
     Route: 048
     Dates: start: 20190507
  31. BECOZYME C [Concomitant]
     Dosage: UNK
  32. IMODIUM [Concomitant]
     Active Substance: LOPERAMIDE HYDROCHLORIDE
     Dosage: UNK (RESERVED)

REACTIONS (1)
  - Metabolic acidosis [Not Recovered/Not Resolved]

NARRATIVE: CASE EVENT DATE: 20190520
